FAERS Safety Report 14489701 (Version 1)
Quarter: 2018Q1

REPORT INFORMATION
  Report Type: Report from Study
  Country: None (occurrence: AU)
  Receive Date: 20180205
  Receipt Date: 20180205
  Transmission Date: 20180509
  Serious: Yes (Hospitalization)
  Sender: FDA-Public Use
  Company Number: AU-ABBVIE-18K-008-2241835-00

PATIENT
  Sex: Female

DRUGS (1)
  1. HUMIRA [Suspect]
     Active Substance: ADALIMUMAB
     Indication: CROHN^S DISEASE
     Route: 058
     Dates: start: 20170622

REACTIONS (5)
  - Drug effect incomplete [Unknown]
  - Crohn^s disease [Recovering/Resolving]
  - Genital pain [Recovering/Resolving]
  - Injection site pain [Not Recovered/Not Resolved]
  - Genital swelling [Recovering/Resolving]
